FAERS Safety Report 7365415-0 (Version None)
Quarter: 2011Q1

REPORT INFORMATION
  Report Type: 
  Country: None (occurrence: None)
  Receive Date: 20110315
  Receipt Date: 20110315
  Transmission Date: 20110831
  Serious: Yes (Hospitalization)
  Sender: FDA-Public Use
  Company Number: None

PATIENT
  Age: 83 Year
  Sex: Female
  Weight: 68.0396 kg

DRUGS (2)
  1. ZOMETA [Suspect]
  2. RECLAST [Suspect]
     Indication: BONE DENSITY DECREASED
     Dosage: 15 MIN BY NURSE 1 EACH YEAR I.V. COBB HOSP.
     Route: 042
     Dates: start: 20101228

REACTIONS (5)
  - INFECTION [None]
  - BLOOD DISORDER [None]
  - BLOOD PRESSURE DECREASED [None]
  - ASTHENIA [None]
  - DYSPNOEA [None]
